FAERS Safety Report 10220712 (Version 6)
Quarter: 2014Q4

REPORT INFORMATION
  Report Type: Spontaneous
  Country: US (occurrence: US)
  Receive Date: 20140606
  Receipt Date: 20141124
  Transmission Date: 20150528
  Serious: Yes (Hospitalization, Other)
  Sender: FDA-Public Use
  Company Number: US-PFIZER INC-2014150318

PATIENT
  Age: 78 Year
  Sex: Female

DRUGS (7)
  1. SUTENT [Interacting]
     Active Substance: SUNITINIB MALATE
     Dosage: UNK
  2. BECLOMETHASONE [Concomitant]
     Active Substance: BECLOMETHASONE
  3. KEPPRA [Concomitant]
     Active Substance: LEVETIRACETAM
  4. CRESTOR [Concomitant]
     Active Substance: ROSUVASTATIN CALCIUM
  5. SUTENT [Suspect]
     Active Substance: SUNITINIB MALATE
     Indication: THYROID CANCER
     Dosage: 25 MG, CYCLIC: DAILY, 4 WEEKS ON/2 WEEKS OFF
     Route: 048
     Dates: start: 20140516
  6. SUTENT [Interacting]
     Active Substance: SUNITINIB MALATE
     Dosage: UNK
  7. ECOTRIN [Interacting]
     Active Substance: ASPIRIN
     Dosage: UNK

REACTIONS (20)
  - Erythema [Unknown]
  - Drug interaction [Unknown]
  - Blister [Unknown]
  - Hyperkeratosis [Unknown]
  - Haemorrhage subcutaneous [Unknown]
  - Diarrhoea [Unknown]
  - Blood pressure increased [Unknown]
  - Haemoglobin decreased [Unknown]
  - Loss of consciousness [Unknown]
  - Abdominal pain [Unknown]
  - Rash macular [Unknown]
  - Dyspepsia [Unknown]
  - Rash [Unknown]
  - Burning sensation [Unknown]
  - Amnesia [Unknown]
  - Seizure [Unknown]
  - Abasia [Unknown]
  - Monocyte count decreased [Unknown]
  - Arthralgia [Unknown]
  - Product use issue [Unknown]

NARRATIVE: CASE EVENT DATE: 20140516
